FAERS Safety Report 21139034 (Version 4)
Quarter: 2025Q1

REPORT INFORMATION
  Report Type: Spontaneous
  Country: US (occurrence: US)
  Receive Date: 20220727
  Receipt Date: 20250128
  Transmission Date: 20250409
  Serious: No
  Sender: PFIZER
  Company Number: US-PFIZER INC-PV202200016949

PATIENT
  Age: 68 Year
  Sex: Female
  Weight: 64.853 kg

DRUGS (4)
  1. IBRANCE [Suspect]
     Active Substance: PALBOCICLIB
     Indication: Breast cancer metastatic
     Route: 048
     Dates: start: 20210209, end: 20220620
  2. IBRANCE [Suspect]
     Active Substance: PALBOCICLIB
     Indication: Invasive ductal breast carcinoma
  3. IBRANCE [Suspect]
     Active Substance: PALBOCICLIB
     Indication: Inflammatory carcinoma of the breast
  4. ANASTROZOLE [Concomitant]
     Active Substance: ANASTROZOLE

REACTIONS (1)
  - Colposcopy abnormal [Unknown]

NARRATIVE: CASE EVENT DATE: 20220629
